FAERS Safety Report 4917007-8 (Version None)
Quarter: 2006Q1

REPORT INFORMATION
  Report Type: 
  Country: None (occurrence: None)
  Receive Date: 20060221
  Receipt Date: 20060207
  Transmission Date: 20060701
  Serious: Yes (Death)
  Sender: FDA-Public Use
  Company Number: US-AMGEN-US168063

PATIENT
  Sex: Female

DRUGS (1)
  1. ARANESP [Suspect]
     Indication: ANAEMIA OF MALIGNANT DISEASE
     Route: 058
     Dates: start: 20050519, end: 20050616

REACTIONS (3)
  - DISEASE PROGRESSION [None]
  - OESOPHAGEAL CARCINOMA [None]
  - RESPIRATORY DISTRESS [None]
